FAERS Safety Report 5796560-9 (Version None)
Quarter: 2008Q2

REPORT INFORMATION
  Report Type: 
  Country: None (occurrence: None)
  Receive Date: 20080630
  Receipt Date: 20080630
  Transmission Date: 20081010
  Serious: Yes (Other)
  Sender: FDA-Public Use
  Company Number: None

PATIENT
  Age: 52 Year
  Sex: Male
  Weight: 68.0396 kg

DRUGS (1)
  1. CHANTIX [Suspect]
     Indication: SMOKING CESSATION THERAPY
     Dosage: 1 A DAY FOR WEEK 1, 2 A DAY AFTER THE F
     Dates: start: 20080101, end: 20080207

REACTIONS (2)
  - DEPRESSION [None]
  - NIGHTMARE [None]
